FAERS Safety Report 5589382-5 (Version None)
Quarter: 2008Q1

REPORT INFORMATION
  Report Type: 
  Country: None (occurrence: None)
  Receive Date: 20080114
  Receipt Date: 20080107
  Transmission Date: 20080703
  Serious: Yes (Death, Hospitalization)
  Sender: FDA-Public Use
  Company Number: JP-BAYER-JP-2006-035861

PATIENT
  Age: 75 Year
  Sex: Male
  Weight: 55 kg

DRUGS (16)
  1. FLUDARA [Suspect]
     Indication: CHRONIC LYMPHOCYTIC LEUKAEMIA
     Dosage: TOTAL DAILY DOSE: 40 MG  UNIT DOSE: 50 MG
     Route: 042
     Dates: start: 20040805, end: 20040809
  2. FLUDARA [Suspect]
     Dosage: TOTAL DAILY DOSE: 40 MG  UNIT DOSE: 50 MG
     Route: 042
     Dates: start: 20040914, end: 20040918
  3. FLUDARA [Suspect]
     Dosage: TOTAL DAILY DOSE: 40 MG  UNIT DOSE: 50 MG
     Route: 042
     Dates: start: 20060606, end: 20060610
  4. FLUDARA [Suspect]
     Dosage: TOTAL DAILY DOSE: 40 MG  UNIT DOSE: 50 MG
     Route: 042
     Dates: start: 20060706, end: 20060710
  5. FLUDARA [Suspect]
     Dosage: TOTAL DAILY DOSE: 40 MG  UNIT DOSE: 50 MG
     Route: 042
     Dates: start: 20070316, end: 20070320
  6. FLUDARA [Suspect]
     Dosage: TOTAL DAILY DOSE: 40 MG  UNIT DOSE: 50 MG
     Route: 042
     Dates: start: 20070406, end: 20070410
  7. RITUXAN [Suspect]
     Indication: ANAEMIA HAEMOLYTIC AUTOIMMUNE
     Dosage: TOTAL DAILY DOSE: 570 MG
     Route: 042
     Dates: start: 20070509, end: 20070509
  8. RITUXAN [Suspect]
     Dosage: TOTAL DAILY DOSE: 570 MG
     Route: 042
     Dates: start: 20070530, end: 20070530
  9. RITUXAN [Suspect]
     Dosage: TOTAL DAILY DOSE: 570 MG
     Route: 042
     Dates: start: 20070501, end: 20070501
  10. RITUXAN [Suspect]
     Dosage: TOTAL DAILY DOSE: 570 MG
     Route: 042
     Dates: start: 20070501, end: 20070501
  11. JUVELA NICOTINATE [Concomitant]
     Indication: HYPERTENSION
     Dosage: UNIT DOSE: 600 MG
     Route: 048
     Dates: start: 20040910, end: 20041031
  12. SIGMART [Concomitant]
     Indication: HYPERTENSION
     Dosage: UNIT DOSE: 15 MG
     Route: 048
     Dates: start: 20041004, end: 20041004
  13. MAGNESIUM OXIDE [Concomitant]
     Indication: CONSTIPATION
     Dosage: UNIT DOSE: 1.5 G
     Route: 048
     Dates: start: 20041007, end: 20041017
  14. ENDOXAN-P [Concomitant]
     Indication: CHRONIC LYMPHOCYTIC LEUKAEMIA RECURRENT
     Dosage: TOTAL DAILY DOSE: 50 MG
     Route: 048
     Dates: start: 20060522, end: 20060528
  15. ENDOXAN-P [Concomitant]
     Dosage: TOTAL DAILY DOSE: 50 MG
     Route: 048
     Dates: start: 20061003, end: 20070226
  16. PREDNISOLONE [Concomitant]
     Indication: CHRONIC LYMPHOCYTIC LEUKAEMIA RECURRENT
     Dosage: TOTAL DAILY DOSE: 30 MG
     Route: 048
     Dates: start: 20070406, end: 20070523

REACTIONS (9)
  - ANAEMIA HAEMOLYTIC AUTOIMMUNE [None]
  - CONJUNCTIVITIS [None]
  - HEPATIC FAILURE [None]
  - HERPES ZOSTER [None]
  - JAUNDICE [None]
  - NAUSEA [None]
  - PHLEBITIS [None]
  - PNEUMONIA [None]
  - TOXIC SKIN ERUPTION [None]
